FAERS Safety Report 9929471 (Version 1)
Quarter: 2014Q1

REPORT INFORMATION
  Report Type: Spontaneous
  Country: US (occurrence: US)
  Receive Date: 20140227
  Receipt Date: 20140227
  Transmission Date: 20141002
  Serious: Yes (Death)
  Sender: FDA-Public Use
  Company Number: US-GLAXOSMITHKLINE-A1062581A

PATIENT
  Age: 66 Year
  Sex: Female

DRUGS (3)
  1. PROMACTA [Suspect]
     Indication: CHRONIC HEPATITIS C
     Dosage: 50MG PER DAY
     Route: 065
     Dates: start: 20140122, end: 20140124
  2. UNKNOWN [Concomitant]
  3. SOFOSBUVIR [Concomitant]

REACTIONS (2)
  - Lymphoma [Fatal]
  - Hepatitis C [Fatal]
